FAERS Safety Report 10687925 (Version 1)
Quarter: 2014Q4

REPORT INFORMATION
  Report Type: Spontaneous
  Country: BE (occurrence: None)
  Receive Date: 20141230
  Receipt Date: 20141230
  Transmission Date: 20150529
  Serious: Yes (Hospitalization)
  Sender: FDA-Public Use
  Company Number: NSR_01738_2014

PATIENT
  Age: 77 Year
  Sex: Female

DRUGS (1)
  1. ALLOPURINOL. [Suspect]
     Active Substance: ALLOPURINOL
     Indication: PRODUCT USED FOR UNKNOWN INDICATION
     Dosage: (DF)

REACTIONS (7)
  - Blood urea increased [None]
  - Stress cardiomyopathy [None]
  - Pruritus [None]
  - Medication error [None]
  - Renal impairment [None]
  - Blood pressure diastolic decreased [None]
  - Rash [None]
